FAERS Safety Report 23912806 (Version 1)
Quarter: 2024Q2

REPORT INFORMATION
  Report Type: Spontaneous
  Country: KZ (occurrence: KZ)
  Receive Date: 20240529
  Receipt Date: 20240529
  Transmission Date: 20240715
  Serious: Yes (Other)
  Sender: FDA-Public Use
  Company Number: KZ-NOVOPROD-1224691

PATIENT
  Age: 43 Year
  Sex: Female

DRUGS (1)
  1. VICTOZA [Suspect]
     Active Substance: LIRAGLUTIDE
     Indication: Product used for unknown indication
     Dosage: DAILY DOSE: 1.8

REACTIONS (7)
  - Cardiac failure chronic [Unknown]
  - Diabetic macroangiopathy [Unknown]
  - Type 2 diabetes mellitus [Unknown]
  - Macroangiopathy [Unknown]
  - Hypertension [Unknown]
  - Injection site erythema [Unknown]
  - Injection site irritation [Unknown]
